FAERS Safety Report 15869264 (Version 3)
Quarter: 2019Q4

REPORT INFORMATION
  Report Type: Spontaneous
  Country: FR (occurrence: FR)
  Receive Date: 20190125
  Receipt Date: 20191119
  Transmission Date: 20200122
  Serious: Yes (Other)
  Sender: FDA-Public Use
  Company Number: FR-BAUSCH-BL-2019-001134

PATIENT
  Age: 74 Year
  Sex: Female

DRUGS (7)
  1. YELLOX 0.9 MG/ML EYE DROPS, SOLUTION [Suspect]
     Active Substance: BROMFENAC SODIUM
     Dosage: PRESCRIBED FOR 7 ADDITIONAL WEEKS BUT DECIDED TO USE 15 DAYS
     Route: 047
     Dates: start: 201811
  2. INDOCOLLYRE 0.1% COL EN SOLUTION EN RECIPIENT UNIDOSE [Suspect]
     Active Substance: INDOMETHACIN
     Indication: PROPHYLAXIS
     Dosage: SINGLE DOSE UNITS (3 DROPS PER DAY)
     Route: 047
     Dates: start: 20180926, end: 20181026
  3. CORTISONE [Suspect]
     Active Substance: CORTISONE
     Indication: RETINAL OEDEMA
     Dosage: IN HER LEFT EYE
     Route: 050
     Dates: start: 201901
  4. YELLOX 0.9 MG/ML EYE DROPS, SOLUTION [Suspect]
     Active Substance: BROMFENAC SODIUM
     Indication: CYSTOID MACULAR OEDEMA
     Dosage: 2 DROPS PER DAY IN BOTH EYES
     Route: 047
     Dates: start: 20181011, end: 201811
  5. DEXAFREE [Concomitant]
     Active Substance: DEXAMETHASONE SODIUM PHOSPHATE
     Indication: RETINAL OEDEMA
     Route: 065
     Dates: start: 20180926, end: 201810
  6. DIAMOX SEQUELS [Concomitant]
     Active Substance: ACETAZOLAMIDE
     Indication: RETINAL OEDEMA
     Route: 048
     Dates: start: 20181011, end: 2018
  7. DIAMOX SEQUELS [Concomitant]
     Active Substance: ACETAZOLAMIDE
     Indication: CYSTOID MACULAR OEDEMA
     Dosage: 1 TO 2 TABLETS TWICE DAILY
     Route: 048
     Dates: start: 201811

REACTIONS (4)
  - Drug ineffective [Recovered/Resolved]
  - Off label use [Unknown]
  - Cystoid macular oedema [Recovering/Resolving]
  - Intraocular pressure increased [Unknown]

NARRATIVE: CASE EVENT DATE: 2018
